FAERS Safety Report 4341896-1 (Version None)
Quarter: 2004Q2

REPORT INFORMATION
  Report Type: 
  Country: None (occurrence: None)
  Receive Date: 20040415
  Receipt Date: 20040331
  Transmission Date: 20050107
  Serious: Yes (Hospitalization)
  Sender: FDA-Public Use
  Company Number: USA040463746

PATIENT
  Age: 47 Year
  Sex: Male
  Weight: 84 kg

DRUGS (4)
  1. STRATTERA [Suspect]
     Indication: ATTENTION DEFICIT/HYPERACTIVITY DISORDER
     Dosage: 80 MG DAY
     Dates: start: 20040101
  2. MULTIVITAMIN [Concomitant]
  3. PERCOCET [Concomitant]
  4. VALIUM [Concomitant]

REACTIONS (4)
  - ANXIETY [None]
  - DRY MOUTH [None]
  - NEPHROLITHIASIS [None]
  - PARAESTHESIA [None]
